FAERS Safety Report 6218888-0 (Version None)
Quarter: 2009Q2

REPORT INFORMATION
  Report Type: 
  Country: None (occurrence: None)
  Receive Date: 20090608
  Receipt Date: 20090603
  Transmission Date: 20091009
  Serious: Yes (Death)
  Sender: FDA-Public Use
  Company Number: US-SANOFI-SYNTHELABO-A03200902383

PATIENT
  Age: 30 Year
  Sex: Female

DRUGS (2)
  1. ELOXATIN [Suspect]
     Indication: SMALL INTESTINE CARCINOMA
     Route: 042
     Dates: start: 20090101, end: 20090101
  2. ELOXATIN [Suspect]
     Indication: COLORECTAL CANCER
     Route: 042
     Dates: start: 20090101, end: 20090101

REACTIONS (3)
  - DISEASE PROGRESSION [None]
  - INTESTINAL OBSTRUCTION [None]
  - RENAL FAILURE [None]
